FAERS Safety Report 14890457 (Version 1)
Quarter: 2018Q2

REPORT INFORMATION
  Report Type: Spontaneous
  Country: DE (occurrence: DE)
  Receive Date: 20180514
  Receipt Date: 20180514
  Transmission Date: 20180711
  Serious: Yes (Other)
  Sender: FDA-Public Use
  Company Number: DE-TEVA-2018-DE-886879

PATIENT
  Age: 37 Year
  Sex: Female

DRUGS (1)
  1. FEMIGYNE-RATIOPHARM N [Suspect]
     Active Substance: ETHINYL ESTRADIOL\LEVONORGESTREL
     Dosage: EACH FILM-COATED TABLET CONTAINS 0,03 MG ETHINYLESTRADIOL AND 0,15 MG LEVONORGESTREL
     Route: 048
     Dates: start: 2008

REACTIONS (1)
  - Lipoedema [Not Recovered/Not Resolved]

NARRATIVE: CASE EVENT DATE: 2017
